FAERS Safety Report 4791725-7 (Version None)
Quarter: 2005Q4

REPORT INFORMATION
  Report Type: 
  Country: None (occurrence: None)
  Receive Date: 20051007
  Receipt Date: 20050929
  Transmission Date: 20060501
  Serious: Yes (Death)
  Sender: FDA-Public Use
  Company Number: US-KINGPHARMUSA00001-K200501292

PATIENT
  Age: 78 Year

DRUGS (3)
  1. LEVOXYL [Suspect]
     Route: 048
  2. AMLODIPINE W/BENAZEPRIL [Suspect]
     Route: 048
  3. AMITRIPTYLINE WITH PERPHENAZINE [Suspect]
     Route: 048

REACTIONS (1)
  - COMPLETED SUICIDE [None]
